FAERS Safety Report 16977885 (Version 1)
Quarter: 2019Q4

REPORT INFORMATION
  Report Type: Spontaneous
  Country: CA (occurrence: CA)
  Receive Date: 20191031
  Receipt Date: 20191031
  Transmission Date: 20200122
  Serious: Yes (Death, Other)
  Sender: FDA-Public Use
  Company Number: CA-AUROBINDO-AUR-APL-2019-069742

PATIENT
  Age: 58 Year
  Sex: Female

DRUGS (5)
  1. SANDOSTATIN [Suspect]
     Active Substance: OCTREOTIDE ACETATE
     Indication: METASTATIC CARCINOID TUMOUR
     Dosage: 300 MICROGRAM
     Route: 058
  2. GABAPENTIN. [Suspect]
     Active Substance: GABAPENTIN
     Indication: HYPERHIDROSIS
     Dosage: 100 MILLIGRAM, 3 TIMES A DAY
     Route: 065
  3. SANDOSTATIN [Suspect]
     Active Substance: OCTREOTIDE ACETATE
     Dosage: 150 MICROGRAM
     Route: 058
  4. GABAPENTIN. [Suspect]
     Active Substance: GABAPENTIN
     Indication: PAIN
     Dosage: 400 MILLIGRAM, 3 TIMES A DAY
     Route: 065
  5. SANDOSTATIN [Suspect]
     Active Substance: OCTREOTIDE ACETATE
     Dosage: 30 MILLIGRAM
     Route: 030

REACTIONS (20)
  - Blood glucose fluctuation [Fatal]
  - Blood pressure increased [Fatal]
  - Constipation [Fatal]
  - Fatigue [Fatal]
  - Hot flush [Fatal]
  - Visual acuity reduced [Fatal]
  - Abdominal discomfort [Fatal]
  - Abdominal distension [Fatal]
  - Pain [Fatal]
  - Diarrhoea [Fatal]
  - Flushing [Fatal]
  - Hepatic pain [Fatal]
  - Malignant neoplasm progression [Fatal]
  - Abdominal pain [Fatal]
  - Death [Fatal]
  - Hyperhidrosis [Fatal]
  - Nausea [Fatal]
  - Diabetes mellitus [Fatal]
  - Asthenia [Fatal]
  - Body temperature decreased [Fatal]
